FAERS Safety Report 5767691-4 (Version None)
Quarter: 2008Q2

REPORT INFORMATION
  Report Type: 
  Country: None (occurrence: None)
  Receive Date: 20080612
  Receipt Date: 20080603
  Transmission Date: 20081010
  Serious: Yes (Hospitalization)
  Sender: FDA-Public Use
  Company Number: ES-WYE-H04425108

PATIENT
  Age: 70 Year
  Sex: Male

DRUGS (6)
  1. TRANGOREX [Suspect]
     Route: 048
     Dates: start: 20070701, end: 20080101
  2. CLORAZEPATE DIPOTASSIUM [Concomitant]
     Dosage: 5 MG
     Route: 048
  3. SIMVASTATIN [Concomitant]
     Indication: DYSLIPIDAEMIA
     Dosage: 20 MG
     Route: 048
     Dates: start: 20070701
  4. NORVASC [Concomitant]
     Indication: HYPERTENSION
     Route: 048
     Dates: start: 20070701
  5. OMEPRAZOLE [Interacting]
     Route: 048
     Dates: start: 20070701, end: 20080101
  6. DIGOXIN [Interacting]
     Route: 048
     Dates: start: 20070701, end: 20080219

REACTIONS (3)
  - CARDIOACTIVE DRUG LEVEL INCREASED [None]
  - DRUG INTERACTION [None]
  - DRUG TOXICITY [None]
